FAERS Safety Report 15893234 (Version 1)
Quarter: 2019Q1

REPORT INFORMATION
  Report Type: Report from Study
  Country: US (occurrence: US)
  Receive Date: 20190130
  Receipt Date: 20190130
  Transmission Date: 20190417
  Serious: No
  Sender: FDA-Public Use
  Company Number: US-EXELIXIS-CABO-18016561

PATIENT
  Sex: Male

DRUGS (1)
  1. COMETRIQ [Suspect]
     Active Substance: CABOZANTINIB S-MALATE
     Indication: THYROID CANCER
     Dosage: 100 MG, (1 CAPSULE OF 80 MG AND 1 CAPSULE OF 20 MG)
     Dates: start: 201704

REACTIONS (3)
  - Skin ulcer [Unknown]
  - Hypertension [Unknown]
  - Diarrhoea [Unknown]
